FAERS Safety Report 5901858-7 (Version None)
Quarter: 2008Q3

REPORT INFORMATION
  Report Type: 
  Country: None (occurrence: None)
  Receive Date: 20080929
  Receipt Date: 20080702
  Transmission Date: 20090109
  Serious: Yes (Other)
  Sender: FDA-Public Use
  Company Number: FR-BAYER-200822028GPV

PATIENT
  Age: 75 Year
  Sex: Male

DRUGS (8)
  1. FLUDARABINE PHOSPHATE [Suspect]
     Indication: SPLENIC MARGINAL ZONE LYMPHOMA
     Dosage: AS USED: 25 MG/M2
     Route: 042
     Dates: start: 20070101, end: 20070101
  2. METFORMIN HCL [Interacting]
     Indication: DIABETES MELLITUS
     Dosage: TOTAL DAILY DOSE: 1700 MG
     Dates: start: 20040101
  3. METFORMIN HCL [Interacting]
     Dosage: TOTAL DAILY DOSE: 1700 MG
     Dates: start: 20070101
  4. CLOPIDOGREL [Concomitant]
     Indication: ANGINA PECTORIS
  5. MOLSIDOMINE [Concomitant]
     Indication: ANGINA PECTORIS
  6. ENALAPRIL MALEATE [Concomitant]
     Indication: ANGINA PECTORIS
  7. ACEBUTOLOL [Concomitant]
     Indication: ANGINA PECTORIS
  8. WARFARIN SODIUM [Concomitant]
     Indication: ANGINA PECTORIS

REACTIONS (1)
  - AUTOIMMUNE NEUTROPENIA [None]
